FAERS Safety Report 7097413-9 (Version None)
Quarter: 2010Q4

REPORT INFORMATION
  Report Type: 
  Country: None (occurrence: None)
  Receive Date: 20101111
  Receipt Date: 20101102
  Transmission Date: 20110411
  Serious: Yes (Hospitalization)
  Sender: FDA-Public Use
  Company Number: DE-ELI_LILLY_AND_COMPANY-DE201010003191

PATIENT
  Sex: Female
  Weight: 71 kg

DRUGS (6)
  1. GEMCITABINE HCL [Suspect]
     Indication: NON-SMALL CELL LUNG CANCER
     Dosage: 1720 MG, UNK
     Dates: start: 20100819, end: 20100916
  2. CISPLATIN [Suspect]
     Indication: NON-SMALL CELL LUNG CANCER
     Dosage: 135 MG, UNK
     Dates: start: 20100819, end: 20100909
  3. MARCUMAR [Concomitant]
     Indication: PULMONARY EMBOLISM
     Dates: start: 20090820, end: 20100806
  4. METOPROLOL [Concomitant]
     Indication: TACHYARRHYTHMIA
     Dates: start: 20090826
  5. PANTOPRAZOLE SODIUM [Concomitant]
     Indication: DYSPEPSIA
     Dates: start: 20100817
  6. ZOPICLON [Concomitant]
     Indication: INSOMNIA
     Dates: start: 20100817

REACTIONS (1)
  - PULMONARY EMBOLISM [None]
